FAERS Safety Report 26013901 (Version 1)
Quarter: 2025Q4

REPORT INFORMATION
  Report Type: Spontaneous
  Country: EU (occurrence: EU)
  Receive Date: 20251108
  Receipt Date: 20251108
  Transmission Date: 20260117
  Serious: Yes (Hospitalization, Other)
  Sender: AUROBINDO
  Company Number: EU-KRUIDVAT-25-002

PATIENT
  Age: 24 Year
  Sex: Female

DRUGS (5)
  1. ACETAMINOPHEN [Suspect]
     Active Substance: ACETAMINOPHEN
     Indication: Product used for unknown indication
     Dosage: 4 GRAM, ONCE A DAY (SHE USED 4 GRAMS OF PARACETAMOL A DAY FOR A COUPLE OF MONTHS)
     Route: 065
  2. ALCOHOL [Concomitant]
     Active Substance: ALCOHOL
     Indication: Product used for unknown indication
     Dosage: UNK
     Route: 065
  3. KETAMINE [Concomitant]
     Active Substance: KETAMINE
     Indication: Product used for unknown indication
     Dosage: UNK
     Route: 065
  4. COCAINE [Concomitant]
     Active Substance: COCAINE
     Indication: Product used for unknown indication
     Dosage: UNK
     Route: 065
  5. CANNABIS SATIVA SUBSP. INDICA TOP [Concomitant]
     Active Substance: CANNABIS SATIVA SUBSP. INDICA TOP
     Indication: Product used for unknown indication
     Dosage: UNK
     Route: 065

REACTIONS (18)
  - Cholangitis sclerosing [Unknown]
  - Periportal fibrosis [Unknown]
  - Weight decreased [Unknown]
  - Fatigue [Unknown]
  - Malaise [Unknown]
  - Hepatic steatosis [Unknown]
  - Hepatomegaly [Unknown]
  - Abdominal pain [Unknown]
  - Diarrhoea [Unknown]
  - Pollakiuria [Unknown]
  - Cholestasis [Unknown]
  - Eating disorder [Unknown]
  - Night sweats [Unknown]
  - Frequent bowel movements [Unknown]
  - Urinary incontinence [Unknown]
  - Bladder pain [Unknown]
  - Anastomotic complication [Recovered/Resolved]
  - Decreased appetite [Unknown]

NARRATIVE: CASE EVENT DATE: 20240201
